FAERS Safety Report 5449091-X (Version None)
Quarter: 2007Q3

REPORT INFORMATION
  Report Type: 
  Country: None (occurrence: None)
  Receive Date: 20070911
  Receipt Date: 20070905
  Transmission Date: 20080115
  Serious: Yes (Other)
  Sender: FDA-Public Use
  Company Number: FR-ABBOTT-07P-056-0416180-00

PATIENT
  Age: 21 Year
  Sex: Female

DRUGS (1)
  1. MONONAXY [Suspect]
     Indication: ANGINA PECTORIS
     Route: 048
     Dates: start: 20070101

REACTIONS (3)
  - ANGIOEDEMA [None]
  - DYSPNOEA [None]
  - FACE OEDEMA [None]
